FAERS Safety Report 13847901 (Version 2)
Quarter: 2018Q1

REPORT INFORMATION
  Report Type: Spontaneous
  Country: US (occurrence: US)
  Receive Date: 20170809
  Receipt Date: 20180208
  Transmission Date: 20180508
  Serious: No
  Sender: FDA-Public Use
  Company Number: US-PURDUE-USA-2017-0137566

PATIENT
  Sex: Female

DRUGS (3)
  1. BUTRANS [Suspect]
     Active Substance: BUPRENORPHINE
     Indication: PAIN IN EXTREMITY
  2. BUTRANS [Suspect]
     Active Substance: BUPRENORPHINE
     Indication: NECK PAIN
     Dosage: 15 MCG/HR, WEEKLY
     Route: 062
     Dates: start: 2017
  3. BUTRANS [Suspect]
     Active Substance: BUPRENORPHINE
     Indication: BACK PAIN
     Dosage: 5 MCG/HR, WEEKLY
     Route: 062
     Dates: start: 2017

REACTIONS (12)
  - Skin irritation [Recovered/Resolved]
  - Weight decreased [Recovered/Resolved]
  - Product quality issue [Unknown]
  - Rash [Recovered/Resolved]
  - Unevaluable event [Unknown]
  - Nausea [Recovered/Resolved]
  - Drug effect increased [Recovered/Resolved]
  - Application site pruritus [Recovered/Resolved]
  - Pain [Recovered/Resolved]
  - Asthenia [Recovered/Resolved]
  - Device leakage [Recovered/Resolved]
  - Diarrhoea [Recovered/Resolved]

NARRATIVE: CASE EVENT DATE: 2017
